FAERS Safety Report 13927174 (Version 5)
Quarter: 2018Q2

REPORT INFORMATION
  Report Type: Spontaneous
  Country: US (occurrence: US)
  Receive Date: 20170901
  Receipt Date: 20180618
  Transmission Date: 20180711
  Serious: Yes (Life-Threatening, Hospitalization)
  Sender: FDA-Public Use
  Company Number: US-JNJFOC-20170823590

PATIENT
  Age: 34 Year
  Sex: Male
  Weight: 60 kg

DRUGS (2)
  1. PARACETAMOL [Suspect]
     Active Substance: ACETAMINOPHEN
     Indication: PRODUCT USED FOR UNKNOWN INDICATION
     Dosage: APPROXIMATELY 25 G
     Route: 048
  2. PARACETAMOL [Suspect]
     Active Substance: ACETAMINOPHEN
     Route: 048

REACTIONS (7)
  - Brain oedema [Recovering/Resolving]
  - Coagulopathy [Recovered/Resolved]
  - Intentional overdose [Unknown]
  - Hypophosphataemia [Recovering/Resolving]
  - Acute hepatic failure [Recovered/Resolved]
  - Blood bicarbonate decreased [Recovering/Resolving]
  - Hepatotoxicity [Recovered/Resolved]
